FAERS Safety Report 19167615 (Version 1)
Quarter: 2021Q2

REPORT INFORMATION
  Report Type: Spontaneous
  Country: US (occurrence: US)
  Receive Date: 20210421
  Receipt Date: 20210421
  Transmission Date: 20210717
  Serious: No
  Sender: FDA-Public Use
  Company Number: None

PATIENT
  Age: 63 Year
  Sex: Male

DRUGS (2)
  1. PROPAFENONE. [Concomitant]
     Active Substance: PROPAFENONE
  2. HUMIRA [Suspect]
     Active Substance: ADALIMUMAB
     Indication: OSTEOARTHRITIS
     Dosage: ?          OTHER FREQUENCY:EVERY OTHER WEEK;?
     Route: 058
     Dates: start: 20180201

REACTIONS (3)
  - Osteoarthritis [None]
  - Lung cancer metastatic [None]
  - Metastases to spine [None]

NARRATIVE: CASE EVENT DATE: 20210420
